FAERS Safety Report 10202694 (Version 1)
Quarter: 2014Q2

REPORT INFORMATION
  Report Type: Other
  Country: DK (occurrence: CA)
  Receive Date: 20140528
  Receipt Date: 20140528
  Transmission Date: 20141212
  Serious: Yes (Death)
  Sender: FDA-Public Use
  Company Number: CA-FRI-1000067597

PATIENT
  Sex: Female

DRUGS (8)
  1. CELEXA [Suspect]
     Dosage: 40 MG
     Route: 048
  2. AZITHROMYCIN [Suspect]
     Indication: PNEUMONIA
     Dosage: DAILY DOSE NOT REPORTED
  3. ANTIHYPERTENSIVE [Concomitant]
     Dosage: DAILY DOSE NOT REPORTED.
  4. ANTICOAGULANT [Concomitant]
     Dosage: DAILY DOSE NOT REPORTED.
  5. NONPRESCRIPTION SUPPLEMENTS [Concomitant]
     Dosage: DAILY DOSE NOT REPORTED.
  6. AMPICILLIN [Concomitant]
     Indication: PNEUMONIA
     Dosage: DAILY DOSE NOT REPORTED
  7. GENTAMICIN [Concomitant]
     Indication: PNEUMONIA
     Dosage: DAILY DOSE NOT REPORTED
  8. CEFTRIAXONE [Concomitant]
     Indication: PNEUMONIA
     Dosage: DAILY DOSE NOT REPORTED

REACTIONS (9)
  - Long QT syndrome [Fatal]
  - Drug interaction [Fatal]
  - Cardiac arrest [Fatal]
  - Syncope [Fatal]
  - Atrial fibrillation [Fatal]
  - Electrocardiogram QT prolonged [Fatal]
  - Malaise [Fatal]
  - Pyrexia [Fatal]
  - Cough [Fatal]
